FAERS Safety Report 4733356-0 (Version None)
Quarter: 2005Q3

REPORT INFORMATION
  Report Type: 
  Country: None (occurrence: None)
  Receive Date: 20050801
  Receipt Date: 20050801
  Transmission Date: 20060218
  Serious: Yes (Other)
  Sender: FDA-Public Use
  Company Number: None

PATIENT
  Sex: Female
  Weight: 51.2565 kg

DRUGS (2)
  1. LEVAQUIN [Suspect]
     Indication: DRUG HYPERSENSITIVITY
     Dosage: 1 PO QD X 7 D
     Route: 048
     Dates: start: 20050418
  2. LEVAQUIN [Suspect]
     Indication: PHARYNGITIS
     Dosage: 1 PO QD X 7 D
     Route: 048
     Dates: start: 20050418

REACTIONS (5)
  - JOINT EFFUSION [None]
  - MALAISE [None]
  - MUSCULOSKELETAL DISCOMFORT [None]
  - NIGHT SWEATS [None]
  - PAIN IN EXTREMITY [None]
